FAERS Safety Report 7706286-X (Version None)
Quarter: 2011Q3

REPORT INFORMATION
  Report Type: 
  Country: None (occurrence: None)
  Receive Date: 20110824
  Receipt Date: 20110816
  Transmission Date: 20111222
  Serious: Yes (Other)
  Sender: FDA-Public Use
  Company Number: GB-ROCHE-797432

PATIENT
  Sex: Female

DRUGS (2)
  1. DESOGESTREL AND ETHINYL ESTRADIOL [Concomitant]
     Route: 065
  2. ISOTRETINOIN [Suspect]
     Route: 065

REACTIONS (3)
  - TACHYCARDIA [None]
  - NO THERAPEUTIC RESPONSE [None]
  - HORMONE LEVEL ABNORMAL [None]
